FAERS Safety Report 15080129 (Version 6)
Quarter: 2021Q1

REPORT INFORMATION
  Report Type: Spontaneous
  Country: DE (occurrence: DE)
  Receive Date: 20180627
  Receipt Date: 20210217
  Transmission Date: 20210419
  Serious: Yes (Death, Other)
  Sender: FDA-Public Use
  Company Number: DE-ANIPHARMA-2018-DE-000118

PATIENT
  Age: 74 Year
  Sex: Male

DRUGS (14)
  1. QUETIAPINE FUMARATE. [Suspect]
     Active Substance: QUETIAPINE FUMARATE
     Dosage: UNKNOWN DOSE AND FREQUENCY
     Route: 048
  2. CANDESARTAN CILEXETIL AND HYDROCHLOROTHIAZIDE [Suspect]
     Active Substance: CANDESARTAN CILEXETIL\HYDROCHLOROTHIAZIDE
     Indication: PRODUCT USED FOR UNKNOWN INDICATION
     Dosage: UNKNOWN DOSE AND FREQUENCY
     Route: 048
  3. SIMVASTATIN. [Suspect]
     Active Substance: SIMVASTATIN
     Dosage: UNKNOWN DOSE AND FREQUENCY
     Route: 048
  4. LANTUS [Suspect]
     Active Substance: INSULIN GLARGINE
     Dosage: UNKNOWN DOSE AND FREQUENCY
     Route: 065
  5. ALLOPURINOL. [Suspect]
     Active Substance: ALLOPURINOL
     Dosage: UNKNOWN DOSE AND FREQUENCY
     Route: 048
  6. LEVOMEPROMAZINE [Suspect]
     Active Substance: LEVOMEPROMAZINE
     Dosage: UNKNOWN DOSE AND FREQUENCY
     Route: 048
  7. APIDRA [Suspect]
     Active Substance: INSULIN GLULISINE
     Dosage: UNKNOWN DOSE AND FREQUENCY
     Route: 065
  8. METFORMIN HYDROCHLORIDE. [Suspect]
     Active Substance: METFORMIN HYDROCHLORIDE
     Dosage: 500 MG UNK
     Route: 048
  9. TAMSULOSIN HYDROCHLORIDE. [Suspect]
     Active Substance: TAMSULOSIN HYDROCHLORIDE
     Dosage: UNKNOWN DOSE AND FREQUENCY
     Route: 048
  10. DONEPEZIL HYDROCHLORIDE. [Suspect]
     Active Substance: DONEPEZIL HYDROCHLORIDE
     Dosage: UNKNOWN DOSE AND FREQUENCY
     Route: 048
  11. RISPERIDONE. [Suspect]
     Active Substance: RISPERIDONE
     Dosage: UNKNOWN DOSE AND FREQUENCY
     Route: 048
  12. BISOPROLOL SALT NOT SPECIFIED [Suspect]
     Active Substance: BISOPROLOL
     Dosage: UNKNOWN DOSE AND FREQUENCY
     Route: 048
  13. FALITHROM [Suspect]
     Active Substance: PHENPROCOUMON
     Dosage: UNKNOWN DOSE AND FREQUENCY
     Route: 048
  14. TORASEMIDE [Suspect]
     Active Substance: TORSEMIDE
     Dosage: UNKNOWN DOSE AND FREQUENCY
     Route: 048

REACTIONS (19)
  - Drug interaction [Unknown]
  - Hyperhidrosis [Unknown]
  - Death [Fatal]
  - Renal failure [Unknown]
  - Cardiovascular disorder [Unknown]
  - Urinary incontinence [Unknown]
  - Balance disorder [Unknown]
  - Blood glucose abnormal [Unknown]
  - Cognitive disorder [Unknown]
  - Contusion [Unknown]
  - Adverse drug reaction [Unknown]
  - Contraindicated product administered [Unknown]
  - Intestinal haemorrhage [Unknown]
  - Dizziness [Unknown]
  - Fall [Unknown]
  - Haematoma [Unknown]
  - Confusional state [Unknown]
  - Gastrointestinal haemorrhage [Unknown]
  - Blood glucose fluctuation [Unknown]

NARRATIVE: CASE EVENT DATE: 2017
